FAERS Safety Report 9563827 (Version 1)
Quarter: 2013Q1

REPORT INFORMATION
  Report Type: Spontaneous
  Country: US (occurrence: None)
  Receive Date: 20121203
  Receipt Date: 20121203
  Transmission Date: 20140127
  Serious: Yes (Other)
  Sender: FDA-Public Use
  Company Number: 1208USA006224

PATIENT
  Age: 42 Year
  Sex: Female

DRUGS (1)
  1. NUVARING (ETONOGESTREL (+) ETHINYL ESTRADIOL) VAGINAL RING [Suspect]
     Indication: CONTRACEPTION
     Dosage: 0.120/0.015 MG PER DAY/21 DAYS, VAGINAL

REACTIONS (1)
  - Pulmonary embolism [None]
